FAERS Safety Report 10164107 (Version 1)
Quarter: 2014Q2

REPORT INFORMATION
  Report Type: Spontaneous
  Country: US (occurrence: US)
  Receive Date: 20140510
  Receipt Date: 20140510
  Transmission Date: 20141212
  Serious: No
  Sender: FDA-Public Use
  Company Number: US-BRISTOL-MYERS SQUIBB COMPANY-19941038

PATIENT
  Age: 51 Year
  Sex: Female
  Weight: 120.18 kg

DRUGS (3)
  1. BYETTA PEN DISPOSABLE [Suspect]
     Indication: TYPE 2 DIABETES MELLITUS
     Dosage: NO OF DOSES:2
     Route: 058
     Dates: start: 20131219, end: 20131219
  2. INSULIN [Concomitant]
  3. METFORMIN [Concomitant]

REACTIONS (3)
  - Headache [Unknown]
  - Incorrect dose administered [Unknown]
  - Vomiting [Unknown]
